FAERS Safety Report 5854248-X (Version None)
Quarter: 2008Q3

REPORT INFORMATION
  Report Type: 
  Country: None (occurrence: None)
  Receive Date: 20080822
  Receipt Date: 20080822
  Transmission Date: 20090109
  Serious: Yes (Death, Hospitalization, Other)
  Sender: FDA-Public Use
  Company Number: PHHY2008CH18748

PATIENT
  Age: 66 Year
  Sex: Male

DRUGS (13)
  1. VOLTAREN [Suspect]
     Dosage: 100 MG/DAY
  2. ASPIRIN [Suspect]
     Dosage: 100 MG/DAY
  3. ZALDIAR [Suspect]
     Dosage: 37.5 MG/DAY
  4. ADALAT [Concomitant]
     Dosage: 60 MG/DAY
     Route: 048
  5. CEDUR [Concomitant]
     Dosage: 400 MG/DAY
     Route: 048
     Dates: end: 20070622
  6. COVERSUM [Concomitant]
     Dosage: 4 MG/DAY
     Route: 048
  7. LASIX [Concomitant]
     Dosage: 40 MG/DAY
     Route: 048
  8. LORAZEPAM [Concomitant]
     Dosage: 4X2.5 MG/DAY
     Route: 048
  9. SORTIS [Concomitant]
     Dosage: 80 MG/DAY
     Route: 048
     Dates: start: 20080622, end: 20080705
  10. LEVOFLOXACIN [Concomitant]
     Dosage: 2X500MG/DAY
     Route: 042
     Dates: start: 20080622, end: 20080705
  11. KLACID [Concomitant]
     Dosage: 2X500MG/DAY
     Route: 042
     Dates: start: 20080622, end: 20080627
  12. SOLU-MEDROL [Concomitant]
     Dosage: 250 MG/DAY
     Route: 042
     Dates: start: 20080702, end: 20080702
  13. MEROPENEM [Concomitant]
     Dosage: 3X1000 MG/DAY
     Route: 042
     Dates: start: 20080628, end: 20080717

REACTIONS (18)
  - ACUTE RESPIRATORY DISTRESS SYNDROME [None]
  - DIALYSIS [None]
  - DYSPNOEA [None]
  - ENDOTRACHEAL INTUBATION [None]
  - GASTROINTESTINAL HAEMORRHAGE [None]
  - GASTROINTESTINAL ULCER [None]
  - GENERAL PHYSICAL HEALTH DETERIORATION [None]
  - HAEMOGLOBIN DECREASED [None]
  - ISCHAEMIA [None]
  - LOBAR PNEUMONIA [None]
  - MECHANICAL VENTILATION [None]
  - MULTI-ORGAN FAILURE [None]
  - PLEURISY [None]
  - PNEUMONIA [None]
  - RENAL FAILURE [None]
  - SEPTIC SHOCK [None]
  - SHOCK [None]
  - VENTRICULAR HYPERTROPHY [None]
